FAERS Safety Report 13039113 (Version 1)
Quarter: 2016Q4

REPORT INFORMATION
  Report Type: Spontaneous
  Country: US (occurrence: US)
  Receive Date: 20161216
  Receipt Date: 20161216
  Transmission Date: 20170207
  Serious: Yes (Hospitalization)
  Sender: FDA-Public Use
  Company Number: None

PATIENT
  Age: 72 Year
  Sex: Male
  Weight: 124 kg

DRUGS (1)
  1. DOFETILIDE MAYNE PHARMA [Suspect]
     Active Substance: DOFETILIDE
     Indication: ATRIAL FLUTTER
     Route: 048
     Dates: start: 20161122, end: 20161125

REACTIONS (3)
  - Cholecystitis acute [None]
  - Product substitution issue [None]
  - Abdominal pain [None]

NARRATIVE: CASE EVENT DATE: 20161123
